FAERS Safety Report 12506900 (Version 1)
Quarter: 2016Q2

REPORT INFORMATION
  Report Type: Spontaneous
  Country: DE (occurrence: DE)
  Receive Date: 20160629
  Receipt Date: 20160629
  Transmission Date: 20160815
  Serious: Yes (Other)
  Sender: FDA-Public Use
  Company Number: DE-CIPLA LTD.-2016DE07436

PATIENT

DRUGS (2)
  1. OLANZAPINE. [Suspect]
     Active Substance: OLANZAPINE
     Indication: SCHIZOPHRENIA
     Dosage: 15 MG, QD,
     Route: 065
  2. OLANZAPINE. [Suspect]
     Active Substance: OLANZAPINE
     Dosage: WEIGHT CORRECTED DOSE OF 0.19, 0.18 AND 0.17 MG/KG AT MONTH 6, 7 AND 8 MONTH RESPECTIVELY
     Route: 065

REACTIONS (4)
  - Exposure during pregnancy [Unknown]
  - Caesarean section [Unknown]
  - Drug level increased [Unknown]
  - Weight increased [Unknown]
